FAERS Safety Report 4641356-4 (Version None)
Quarter: 2005Q2

REPORT INFORMATION
  Report Type: 
  Country: None (occurrence: None)
  Receive Date: 20050420
  Receipt Date: 20050420
  Transmission Date: 20051028
  Serious: Yes (Hospitalization)
  Sender: FDA-Public Use
  Company Number: None

PATIENT
  Weight: 94.3482 kg

DRUGS (1)
  1. ATENOLOL [Suspect]
     Dosage: 100 MG PO QD
     Route: 048
     Dates: start: 20050119, end: 20050204

REACTIONS (5)
  - BRADYCARDIA [None]
  - DYSPNOEA [None]
  - DYSPNOEA EXERTIONAL [None]
  - FATIGUE [None]
  - ORTHOPNOEA [None]
